FAERS Safety Report 9295992 (Version 1)
Quarter: 2013Q2

REPORT INFORMATION
  Report Type: Spontaneous
  Country: US (occurrence: None)
  Receive Date: 20130516
  Receipt Date: 20130516
  Transmission Date: 20140414
  Serious: Yes (Other)
  Sender: FDA-Public Use
  Company Number: None

PATIENT
  Age: 62 Year
  Sex: Female

DRUGS (11)
  1. HUMIRA [Suspect]
     Indication: RHEUMATOID ARTHRITIS
     Route: 058
     Dates: start: 2010, end: 201305
  2. XANAX [Concomitant]
  3. RESTASIS [Concomitant]
  4. SYNTHROID [Concomitant]
  5. LOVENOX [Concomitant]
  6. LIPITOR [Concomitant]
  7. ZOLOFT [Concomitant]
  8. VALTREX [Concomitant]
  9. COUMADIN [Concomitant]
  10. SALAGEN [Concomitant]
  11. MOMETASONE [Concomitant]

REACTIONS (1)
  - Actinic keratosis [None]
